FAERS Safety Report 19631352 (Version 6)
Quarter: 2021Q3

REPORT INFORMATION
  Report Type: Report from Study
  Country: CN (occurrence: CN)
  Receive Date: 20210728
  Receipt Date: 20210909
  Transmission Date: 20211014
  Serious: Yes (Hospitalization)
  Sender: FDA-Public Use
  Company Number: CN-ROCHE-2874784

PATIENT
  Age: 49 Year
  Sex: Female
  Weight: 64.5 kg

DRUGS (10)
  1. ENALAPRIL MALEATE. [Concomitant]
     Active Substance: ENALAPRIL MALEATE
     Indication: HYPERTENSION
     Dates: start: 202011
  2. TOCILIZUMAB. [Suspect]
     Active Substance: TOCILIZUMAB
     Indication: RHEUMATOID ARTHRITIS
     Dosage: START DATE OF MOST RECENT DOSE OF STUDY DRUG PRIOR TO AE AND SAE ON 08/JUL/2021
     Route: 058
     Dates: start: 20210317
  3. ATORVASTATIN CALCIUM. [Concomitant]
     Active Substance: ATORVASTATIN CALCIUM
     Indication: HYPERLIPIDAEMIA
     Dates: start: 202011
  4. ASPIRIN ENTERIC?COATED [Concomitant]
     Active Substance: ASPIRIN
     Route: 048
  5. METOPROLOL TARTRATE. [Concomitant]
     Active Substance: METOPROLOL TARTRATE
     Route: 048
  6. ENALAPRIL [Concomitant]
     Active Substance: ENALAPRIL
  7. RABEPRAZOLE EC [Concomitant]
     Active Substance: RABEPRAZOLE
     Dosage: (INTERMITTENT USE FOR STOMACH PROTECTION
  8. ATORVASTATIN CALCIUM. [Concomitant]
     Active Substance: ATORVASTATIN CALCIUM
     Dosage: NIGHT
     Route: 048
  9. PLACEBO [Suspect]
     Active Substance: UNSPECIFIED INGREDIENT
     Indication: RHEUMATOID ARTHRITIS
     Dosage: START DATE OF MOST RECENT DOSE PRIOR TO AE AND SAE ON 14/JUL/2021
     Route: 048
     Dates: start: 20210317
  10. ISOSORBIDE MONONITRATE. [Concomitant]
     Active Substance: ISOSORBIDE MONONITRATE

REACTIONS (1)
  - Angina pectoris [Unknown]

NARRATIVE: CASE EVENT DATE: 20210719
